FAERS Safety Report 4383557-9 (Version None)
Quarter: 2004Q2

REPORT INFORMATION
  Report Type: 
  Country: None (occurrence: None)
  Receive Date: 20040614
  Receipt Date: 20031209
  Transmission Date: 20050107
  Serious: Yes (Hospitalization)
  Sender: FDA-Public Use
  Company Number: 2003189527US

PATIENT
  Age: 29 Year
  Sex: Male
  Weight: 46.1 kg

DRUGS (3)
  1. ZYVOX [Suspect]
     Indication: ENTEROCOCCAL INFECTION
     Dosage: 600 MG, BID, IV
     Route: 042
     Dates: start: 20031006, end: 20031008
  2. METRONIDAZOLE [Concomitant]
  3. FLUCONAZOLE [Concomitant]

REACTIONS (1)
  - LEUKOPENIA [None]
